FAERS Safety Report 9255567 (Version 2)
Quarter: 2013Q2

REPORT INFORMATION
  Report Type: Spontaneous
  Country: US (occurrence: US)
  Receive Date: 20130425
  Receipt Date: 20130603
  Transmission Date: 20140414
  Serious: Yes (Hospitalization)
  Sender: FDA-Public Use
  Company Number: US-GLAXOSMITHKLINE-A1020517A

PATIENT
  Age: 82 Year
  Sex: Female

DRUGS (3)
  1. ADVAIR [Suspect]
     Indication: LUNG DISORDER
     Dosage: 1PUFF ALTERNATE DAYS
     Route: 055
     Dates: start: 2008
  2. BABY ASPIRIN [Concomitant]
  3. DIGOXIN [Concomitant]

REACTIONS (2)
  - Pneumonia [Recovered/Resolved]
  - Expired drug administered [Unknown]
